FAERS Safety Report 7486791-4 (Version None)
Quarter: 2011Q2

REPORT INFORMATION
  Report Type: 
  Country: None (occurrence: None)
  Receive Date: 20110517
  Receipt Date: 20110511
  Transmission Date: 20111010
  Serious: Yes (Hospitalization)
  Sender: FDA-Public Use
  Company Number: US-ALLERGAN-1106579US

PATIENT
  Age: 65 Year
  Sex: Female

DRUGS (1)
  1. BOTOX [Suspect]
     Indication: TORTICOLLIS
     Dosage: UNK

REACTIONS (2)
  - URINARY TRACT INFECTION [None]
  - DYSPHAGIA [None]
